FAERS Safety Report 17853906 (Version 1)
Quarter: 2020Q2

REPORT INFORMATION
  Report Type: Spontaneous
  Country: US (occurrence: US)
  Receive Date: 20200602
  Receipt Date: 20200602
  Transmission Date: 20200714
  Serious: No
  Sender: FDA-Public Use
  Company Number: US-TEVA-2020-US-1242305

PATIENT
  Sex: Male

DRUGS (1)
  1. BUSPIRONE HYDROCHLORIDE TEVA [Suspect]
     Active Substance: BUSPIRONE HYDROCHLORIDE
     Dosage: 1/2 A TABLET (5 MG) ONCE A DAY FOR 7 DAYS. THEN INCREASE TO ^HALF AND HALF FOR 7 DAYS
     Route: 065
     Dates: start: 20200319

REACTIONS (2)
  - Wrong technique in product usage process [Unknown]
  - Dizziness [Not Recovered/Not Resolved]

NARRATIVE: CASE EVENT DATE: 20200403
